FAERS Safety Report 16745635 (Version 1)
Quarter: 2019Q3

REPORT INFORMATION
  Report Type: Spontaneous
  Country: US (occurrence: US)
  Receive Date: 20190827
  Receipt Date: 20190827
  Transmission Date: 20191005
  Serious: Yes (Other)
  Sender: FDA-Public Use
  Company Number: US-AMARIN PHARMA, INC.-2019AMR000327

PATIENT
  Sex: Female
  Weight: 63.11 kg

DRUGS (8)
  1. VASCEPA [Suspect]
     Active Substance: ICOSAPENT ETHYL
     Route: 048
     Dates: start: 2018
  2. RHEUMATE [Concomitant]
     Active Substance: LEVOMEFOLIC ACID\METHYLCOBALAMIN\TURMERIC
     Indication: SUPPLEMENTATION THERAPY
  3. VASCEPA [Suspect]
     Active Substance: ICOSAPENT ETHYL
     Indication: HYPERTRIGLYCERIDAEMIA
     Route: 048
     Dates: start: 2016
  4. ORTHOVISC [Suspect]
     Active Substance: HYALURONIC ACID
     Indication: ARTHRITIS
     Dates: start: 201812
  5. CRESTOR [Concomitant]
     Active Substance: ROSUVASTATIN CALCIUM
     Indication: BLOOD CHOLESTEROL INCREASED
     Dates: start: 201901
  6. CELEBREX [Concomitant]
     Active Substance: CELECOXIB
     Indication: ARTHRITIS
     Dates: start: 2015
  7. GELSYN [DEVICE] [Concomitant]
     Active Substance: DEVICE
     Indication: ARTHRITIS
     Dates: start: 201905
  8. TIZANIDINE. [Concomitant]
     Active Substance: TIZANIDINE
     Indication: MUSCLE RELAXANT THERAPY

REACTIONS (9)
  - Underdose [Unknown]
  - Tinnitus [Unknown]
  - Vertigo [Unknown]
  - Blood triglycerides increased [Unknown]
  - Thyroid cancer [Recovering/Resolving]
  - Dysphagia [Unknown]
  - Dizziness [Unknown]
  - Adverse reaction [Unknown]
  - Cough [Unknown]

NARRATIVE: CASE EVENT DATE: 2018
